FAERS Safety Report 20030112 (Version 5)
Quarter: 2022Q2

REPORT INFORMATION
  Report Type: Spontaneous
  Country: BR (occurrence: BR)
  Receive Date: 20211103
  Receipt Date: 20220610
  Transmission Date: 20220720
  Serious: Yes (Death, Other)
  Sender: FDA-Public Use
  Company Number: BR-Ipsen Biopharmaceuticals, Inc.-2021-26396

PATIENT
  Age: 56 Year
  Sex: Male
  Weight: 67 kg

DRUGS (5)
  1. LANREOTIDE ACETATE [Suspect]
     Active Substance: LANREOTIDE ACETATE
     Indication: Neuroendocrine carcinoma metastatic
     Dosage: 120 MG EVERY 30 DAYS/ONCE A MONTH
     Route: 058
     Dates: start: 202103
  2. DULCOLAX NOS [Concomitant]
     Active Substance: BISACODYL OR DOCUSATE SODIUM
     Indication: Constipation
     Dosage: 1 TABLET EACH 12 HOURS (STRENGTH: 5 MG) (ONGOING)
     Route: 048
     Dates: start: 202107
  3. PANTOPRAZOLE [Concomitant]
     Active Substance: PANTOPRAZOLE
     Indication: Abdominal pain upper
     Dosage: 1 TABLET EACH 12 HOURS (STRENGTH: 40 MG) (ONGOING)
     Route: 048
     Dates: start: 202107
  4. DIPYRONE [Concomitant]
     Active Substance: DIPYRONE
     Indication: Pain
     Dosage: 1 TABLET EACH 6 HOURS (ONGOING)
     Route: 048
     Dates: start: 202107
  5. DIPYRONE [Concomitant]
     Active Substance: DIPYRONE
     Indication: Pyrexia

REACTIONS (13)
  - Death [Fatal]
  - Decreased appetite [Not Recovered/Not Resolved]
  - Weight decreased [Not Recovered/Not Resolved]
  - Abdominal pain [Not Recovered/Not Resolved]
  - Abdominal distension [Not Recovered/Not Resolved]
  - Fatigue [Unknown]
  - Dyspnoea [Not Recovered/Not Resolved]
  - Unevaluable event [Unknown]
  - Diarrhoea [Not Recovered/Not Resolved]
  - Nausea [Not Recovered/Not Resolved]
  - Vomiting [Not Recovered/Not Resolved]
  - Off label use [Unknown]
  - Off label use [Unknown]

NARRATIVE: CASE EVENT DATE: 20210101
